FAERS Safety Report 4500949-5 (Version None)
Quarter: 2004Q4

REPORT INFORMATION
  Report Type: 
  Country: None (occurrence: None)
  Receive Date: 20041110
  Receipt Date: 20041025
  Transmission Date: 20050328
  Serious: Yes (Disabling)
  Sender: FDA-Public Use
  Company Number: 002#4#2004-00267

PATIENT
  Sex: Female

DRUGS (4)
  1. PPA/CPM-75/8MG(OCT) (PHENYLPROPANOLAMINE HCL, CHLORPHENIRAMINE MALEATE [Suspect]
     Indication: NASOPHARYNGITIS
     Dosage: ORAL
  2. ALKA-SELTZER-PLUS COLD [Suspect]
     Indication: NASOPHARYNGITIS
     Dosage: ORAL
     Route: 048
  3. ENTAX-LA [Suspect]
     Indication: NASOPHARYNGITIS
     Dosage: ORAL
  4. BC-ALLERGY SINUS COLD POWDER [Suspect]
     Indication: NASOPHARYNGITIS
     Dosage: ORAL
     Route: 048

REACTIONS (1)
  - HAEMORRHAGIC STROKE [None]
